FAERS Safety Report 10908614 (Version 1)
Quarter: 2015Q1

REPORT INFORMATION
  Report Type: Spontaneous
  Country: US (occurrence: None)
  Receive Date: 20150309
  Receipt Date: 20150309
  Transmission Date: 20150721
  Serious: Yes (Hospitalization)
  Sender: FDA-Public Use
  Company Number: None

PATIENT
  Age: 60 Year
  Sex: Female

DRUGS (1)
  1. CAPECITABINE 500MG TEVA PHARMACEUTICALS [Suspect]
     Active Substance: CAPECITABINE
     Indication: BREAST CANCER
     Route: 048
     Dates: start: 20150131

REACTIONS (2)
  - Electrolyte imbalance [None]
  - Diarrhoea [None]

NARRATIVE: CASE EVENT DATE: 20150225
